FAERS Safety Report 22263310 (Version 1)
Quarter: 2023Q2

REPORT INFORMATION
  Report Type: Report from Study
  Country: US (occurrence: US)
  Receive Date: 20230428
  Receipt Date: 20230428
  Transmission Date: 20230722
  Serious: No
  Sender: FDA-Public Use
  Company Number: US-BIOVITRUM-2023-US-009537

PATIENT
  Age: 40 Year
  Sex: Female

DRUGS (1)
  1. KINERET [Suspect]
     Active Substance: ANAKINRA
     Indication: Rheumatoid arthritis
     Dosage: DAILY
     Route: 058
     Dates: start: 20230309

REACTIONS (7)
  - Dry skin [Unknown]
  - Product dose omission issue [Unknown]
  - Musculoskeletal discomfort [Unknown]
  - Hair texture abnormal [Unknown]
  - Dehydration [Unknown]
  - Drug ineffective [Unknown]
  - Onychoclasis [Unknown]
